FAERS Safety Report 20379078 (Version 1)
Quarter: 2022Q1

REPORT INFORMATION
  Report Type: Report from Study
  Country: US (occurrence: US)
  Receive Date: 20220126
  Receipt Date: 20220126
  Transmission Date: 20220423
  Serious: Yes (Other)
  Sender: FDA-Public Use
  Company Number: US-PFIZER INC-202200073658

PATIENT

DRUGS (3)
  1. DOXORUBICIN HYDROCHLORIDE [Suspect]
     Active Substance: DOXORUBICIN HYDROCHLORIDE
     Indication: Neoplasm
     Dosage: 60 MG/M2, EVERY 3 WEEKS
     Route: 042
  2. CYCLOPHOSPHAMIDE [Suspect]
     Active Substance: CYCLOPHOSPHAMIDE
     Indication: Neoplasm
     Dosage: 600 MG/M2, EVERY 3 WEEKS
     Route: 042
  3. SELINEXOR [Suspect]
     Active Substance: SELINEXOR
     Indication: Neoplasm
     Dosage: 60 MG, WEEKLY
     Route: 048

REACTIONS (1)
  - Febrile neutropenia [Unknown]
